FAERS Safety Report 12336215 (Version 1)
Quarter: 2016Q2

REPORT INFORMATION
  Report Type: Spontaneous
  Country: None (occurrence: CN)
  Receive Date: 20160505
  Receipt Date: 20160505
  Transmission Date: 20160815
  Serious: Yes (Other)
  Sender: FDA-Public Use
  Company Number: CN-MERCK KGAA-1051458

PATIENT

DRUGS (1)
  1. NOVOTHYROX [Suspect]
     Active Substance: LEVOTHYROXINE SODIUM

REACTIONS (8)
  - Poor quality sleep [None]
  - Chest discomfort [None]
  - Swelling face [None]
  - Aptyalism [None]
  - Papillary thyroid cancer [None]
  - Heart rate increased [None]
  - Asthenia [None]
  - Local swelling [None]
